FAERS Safety Report 14947072 (Version 1)
Quarter: 2018Q2

REPORT INFORMATION
  Report Type: Spontaneous
  Country: JP (occurrence: JP)
  Receive Date: 20180529
  Receipt Date: 20180529
  Transmission Date: 20180711
  Serious: Yes (Death, Other)
  Sender: FDA-Public Use
  Company Number: JP-PFIZER INC-2012239217

PATIENT
  Age: 60 Year
  Sex: Female

DRUGS (8)
  1. RHEUMATREX [Suspect]
     Active Substance: METHOTREXATE SODIUM
     Indication: RHEUMATOID ARTHRITIS
     Dosage: 8 MG, WEEKLY
     Route: 048
     Dates: start: 201005, end: 201006
  2. FOLIC ACID. [Suspect]
     Active Substance: FOLIC ACID
     Dosage: 5 MG, WEEKLY
     Route: 048
  3. PREDNISOLONE. [Concomitant]
     Active Substance: PREDNISOLONE
     Dosage: 10 MG/DAY
     Dates: start: 1995
  4. LANSOPRAZOLE. [Concomitant]
     Active Substance: LANSOPRAZOLE
     Dosage: 15 MG/DAY
  5. ATORVASTATIN [Concomitant]
     Active Substance: ATORVASTATIN
     Dosage: 10 MG/DAY
  6. RISEDRONATE SODIUM. [Suspect]
     Active Substance: RISEDRONATE SODIUM
     Dosage: 10 MG, WEEKLY
     Route: 048
     Dates: start: 2007, end: 201003
  7. SENNOSIDE [Concomitant]
     Active Substance: SENNOSIDES
     Dosage: 12 MG, UNK
  8. SULINDAC. [Concomitant]
     Active Substance: SULINDAC
     Dosage: 300 MG/DAY

REACTIONS (2)
  - Osteonecrosis of jaw [Unknown]
  - Lymphoproliferative disorder [Fatal]

NARRATIVE: CASE EVENT DATE: 2010
